FAERS Safety Report 10698927 (Version 1)
Quarter: 2015Q1

REPORT INFORMATION
  Report Type: Spontaneous
  Country: FR (occurrence: FR)
  Receive Date: 20150108
  Receipt Date: 20150108
  Transmission Date: 20150721
  Serious: Yes (Hospitalization)
  Sender: FDA-Public Use
  Company Number: FR-009507513-1501FRA000964

PATIENT
  Age: 65 Year
  Sex: Female

DRUGS (2)
  1. CELESTENE [Suspect]
     Active Substance: BETAMETHASONE
     Indication: OROPHARYNGEAL PAIN
     Dosage: UNK
     Route: 048
     Dates: start: 20141030, end: 20141102
  2. ORELOX [Concomitant]
     Active Substance: CEFPODOXIME
     Dosage: UNK
     Route: 048
     Dates: start: 20141030

REACTIONS (1)
  - Cellulitis [Recovered/Resolved]

NARRATIVE: CASE EVENT DATE: 20141103
